FAERS Safety Report 25872076 (Version 1)
Quarter: 2025Q4

REPORT INFORMATION
  Report Type: Report from Study
  Country: CA (occurrence: CA)
  Receive Date: 20251002
  Receipt Date: 20251002
  Transmission Date: 20260118
  Serious: Yes (Hospitalization)
  Sender: ABBVIE
  Company Number: CA-ABBVIE-6484144

PATIENT
  Sex: Male

DRUGS (1)
  1. RINVOQ [Suspect]
     Active Substance: UPADACITINIB
     Indication: Rheumatoid arthritis
     Dosage: FORM STRENGTH:15MILLIGRAM
     Route: 048

REACTIONS (4)
  - Angina pectoris [Unknown]
  - Obstructive sleep apnoea syndrome [Unknown]
  - Pickwickian syndrome [Unknown]
  - Musculoskeletal chest pain [Unknown]
